FAERS Safety Report 15767880 (Version 1)
Quarter: 2018Q4

REPORT INFORMATION
  Report Type: Spontaneous
  Country: CO (occurrence: CO)
  Receive Date: 20181227
  Receipt Date: 20181227
  Transmission Date: 20190205
  Serious: Yes (Other)
  Sender: FDA-Public Use
  Company Number: CO-PFIZER INC-2018484652

PATIENT
  Age: 70 Year
  Sex: Female

DRUGS (1)
  1. XELJANZ [Suspect]
     Active Substance: TOFACITINIB CITRATE
     Indication: RHEUMATOID ARTHRITIS
     Dosage: 5 MG, 2X/DAY
     Route: 048
     Dates: start: 2015

REACTIONS (6)
  - Upper limb fracture [Unknown]
  - Influenza [Unknown]
  - Pyrexia [Unknown]
  - Limb injury [Unknown]
  - Viral infection [Unknown]
  - Road traffic accident [Unknown]

NARRATIVE: CASE EVENT DATE: 201809
